FAERS Safety Report 6149330-6 (Version None)
Quarter: 2009Q2

REPORT INFORMATION
  Report Type: 
  Country: None (occurrence: None)
  Receive Date: 20090409
  Receipt Date: 20090319
  Transmission Date: 20091009
  Serious: No
  Sender: FDA-Public Use
  Company Number: US-KINGPHARMUSA00001-K200900324

PATIENT
  Sex: Female

DRUGS (11)
  1. VIROPTIC SOLUTION [Suspect]
     Indication: HERPES VIRUS INFECTION
     Dosage: 1 GTT, TID
     Route: 031
     Dates: start: 20080718
  2. CENTRUM                            /00554501/ [Concomitant]
  3. NIFEDIPINE [Concomitant]
     Indication: GLAUCOMA
  4. LUMIGAN [Concomitant]
  5. ACCUPRIL [Concomitant]
  6. ATENOLOL [Concomitant]
  7. LIPITOR [Concomitant]
  8. CALCITROL                          /00508501/ [Concomitant]
  9. PAPAVERINE [Concomitant]
  10. IMIPRAMINE [Concomitant]
  11. ISTALOL [Concomitant]
     Route: 031

REACTIONS (3)
  - DRUG INEFFECTIVE [None]
  - DRUG INTERACTION [None]
  - HERPES OPHTHALMIC [None]
